FAERS Safety Report 7928626-9 (Version None)
Quarter: 2011Q4

REPORT INFORMATION
  Report Type: 
  Country: None (occurrence: None)
  Receive Date: 20111118
  Receipt Date: 20111109
  Transmission Date: 20120403
  Serious: Yes (Hospitalization)
  Sender: FDA-Public Use
  Company Number: FR-MPIJNJ-2011-04910

PATIENT

DRUGS (14)
  1. VELCADE [Suspect]
     Indication: MULTIPLE MYELOMA
     Dosage: 2.6 MG, UNK
     Route: 065
     Dates: start: 20110801, end: 20110922
  2. DEXAMETHASONE [Suspect]
     Indication: MULTIPLE MYELOMA
     Dosage: 20 MG, UNK
     Route: 065
     Dates: start: 20110801, end: 20110923
  3. OXYCONTIN [Concomitant]
     Dosage: UNK
     Route: 048
     Dates: start: 20110803
  4. LEDERFOLIN                         /00566702/ [Concomitant]
     Indication: PROPHYLAXIS
     Dosage: 50 MG, UNK
     Route: 048
     Dates: start: 20110801
  5. REVLIMID [Suspect]
     Indication: MULTIPLE MYELOMA
     Dosage: 25 MG, UNK
     Route: 065
     Dates: start: 20110801, end: 20110925
  6. ZELITREX                           /01269701/ [Concomitant]
     Indication: PROPHYLAXIS
     Dosage: 1000 MG, UNK
     Route: 048
     Dates: start: 20110801
  7. POLYETHYLENE GLYCOL [Concomitant]
     Indication: CONSTIPATION
     Dosage: UNK
     Route: 048
     Dates: start: 20110720
  8. NICARDIPINE HCL [Concomitant]
     Indication: HYPERTENSION
     Dosage: 50 MG, UNK
     Route: 048
     Dates: start: 20110720
  9. LOVENOX [Concomitant]
     Indication: PROPHYLAXIS
     Dosage: 0.4 ML, UNK
     Route: 058
     Dates: start: 20110720
  10. NEXIUM [Concomitant]
     Indication: PROPHYLAXIS
     Dosage: 20 MG, UNK
     Route: 048
     Dates: start: 20110720
  11. CYCLOPHOSPHAMIDE [Suspect]
     Indication: HAEMATOPOIETIC STEM CELL MOBILISATION
     Route: 065
  12. NEORECORMON [Concomitant]
     Indication: ANAEMIA
     Dosage: UNK
     Route: 058
     Dates: start: 20110805
  13. XATRAL                             /00975301/ [Concomitant]
     Dosage: 10 MG, UNK
     Route: 048
     Dates: start: 20110726
  14. BACTRIM [Concomitant]
     Indication: PROPHYLAXIS
     Dosage: UNK
     Route: 048
     Dates: start: 20110801

REACTIONS (1)
  - COLITIS [None]
